FAERS Safety Report 6997616-5 (Version None)
Quarter: 2010Q3

REPORT INFORMATION
  Report Type: 
  Country: None (occurrence: None)
  Receive Date: 20100918
  Receipt Date: 20091116
  Transmission Date: 20110219
  Serious: No
  Sender: FDA-Public Use
  Company Number: US-WYE-H12187409

PATIENT
  Age: 44 Year
  Sex: Female
  Weight: 44.04 kg

DRUGS (2)
  1. PREMPRO [Suspect]
     Indication: HORMONE THERAPY
     Route: 048
     Dates: start: 20040101
  2. TRAZODONE HCL [Concomitant]

REACTIONS (3)
  - COELIAC DISEASE [None]
  - COW'S MILK INTOLERANCE [None]
  - PSORIASIS [None]
